FAERS Safety Report 9179910 (Version 1)
Quarter: 2012Q4

REPORT INFORMATION
  Report Type: 
  Country: IT (occurrence: IT)
  Receive Date: 20121029
  Receipt Date: 20121029
  Transmission Date: 20130627
  Serious: Yes (Hospitalization)
  Sender: FDA-Public Use
  Company Number: IT-TEVA-366375ISR

PATIENT
  Age: 57 None
  Sex: Female

DRUGS (6)
  1. FLUOROURACILE [Suspect]
     Indication: CHEMOTHERAPY
     Route: 042
     Dates: start: 20120816, end: 20120816
  2. IRINOTECAN [Suspect]
     Indication: CHEMOTHERAPY
     Route: 042
     Dates: start: 20120816, end: 20120816
  3. BEVACIZUMAB [Suspect]
     Indication: CHEMOTHERAPY
     Route: 042
     Dates: start: 20120816, end: 20120816
  4. FOLIC ACID [Suspect]
     Indication: CHEMOTHERAPY
     Route: 042
     Dates: start: 20120816, end: 20120816
  5. VALSARTAN [Concomitant]
  6. CARVEDILOLO [Concomitant]

REACTIONS (4)
  - Abdominal pain [Recovering/Resolving]
  - Diarrhoea [Recovering/Resolving]
  - Leukopenia [Recovering/Resolving]
  - Pyrexia [Recovering/Resolving]
